FAERS Safety Report 12270267 (Version 1)
Quarter: 2016Q2

REPORT INFORMATION
  Report Type: Report from Study
  Country: US (occurrence: US)
  Receive Date: 20160415
  Receipt Date: 20160415
  Transmission Date: 20160815
  Serious: No
  Sender: FDA-Public Use
  Company Number: US-AMGEN-USASL2016044136

PATIENT
  Age: 59 Year
  Sex: Male

DRUGS (1)
  1. ENBREL [Suspect]
     Active Substance: ETANERCEPT
     Indication: PRODUCT USED FOR UNKNOWN INDICATION
     Dosage: 50 MG, QWK
     Route: 065
     Dates: start: 20160220

REACTIONS (7)
  - Arthritis [Unknown]
  - Insomnia [Unknown]
  - Injection site extravasation [Unknown]
  - Drug effect decreased [Unknown]
  - Condition aggravated [Unknown]
  - Pain [Unknown]
  - Swelling [Recovering/Resolving]
